FAERS Safety Report 6724191-2 (Version None)
Quarter: 2010Q2

REPORT INFORMATION
  Report Type: 
  Country: None (occurrence: None)
  Receive Date: 20100513
  Receipt Date: 20100510
  Transmission Date: 20101027
  Serious: Yes (Other)
  Sender: FDA-Public Use
  Company Number: US-CEPHALON-2010002666

PATIENT
  Age: 21 Year
  Sex: Female
  Weight: 56 kg

DRUGS (4)
  1. NUVIGIL [Suspect]
     Indication: NARCOLEPSY
     Route: 048
     Dates: start: 20100503
  2. NUVIGIL [Suspect]
     Route: 048
     Dates: start: 20100501
  3. XYREM [Suspect]
     Indication: NARCOLEPSY
  4. BIRTH CONTROL PILLS [Concomitant]

REACTIONS (4)
  - DYSPHAGIA [None]
  - GINGIVAL SWELLING [None]
  - ORAL MUCOSAL EXFOLIATION [None]
  - OROPHARYNGEAL PAIN [None]
